FAERS Safety Report 6617526-2 (Version None)
Quarter: 2010Q1

REPORT INFORMATION
  Report Type: 
  Country: None (occurrence: None)
  Receive Date: 20100223
  Receipt Date: 20091102
  Transmission Date: 20100710
  Serious: No
  Sender: FDA-Public Use
  Company Number: 8053360

PATIENT
  Sex: Female
  Weight: 59.4 kg

DRUGS (4)
  1. CERTOLIZUMAB PEGOL (UCB, INC) [Suspect]
     Indication: COLITIS ULCERATIVE
     Dosage: 400 MG, DOSE FREQ.: ONCE MONTHLY SUBCUTANEOUS
     Route: 058
     Dates: start: 20081209
  2. CERTOLIZUMAB PEGOL (UCB, INC) [Suspect]
     Indication: CROHN'S DISEASE
     Dosage: 400 MG, DOSE FREQ.: ONCE MONTHLY SUBCUTANEOUS
     Route: 058
     Dates: start: 20081209
  3. LEVOTHYROXINE [Concomitant]
  4. FOLIC ACID [Concomitant]

REACTIONS (1)
  - PREGNANCY [None]
